FAERS Safety Report 8169955-6 (Version None)
Quarter: 2012Q1

REPORT INFORMATION
  Report Type: 
  Country: None (occurrence: None)
  Receive Date: 20120228
  Receipt Date: 20120228
  Transmission Date: 20120608
  Serious: No
  Sender: FDA-Public Use
  Company Number: None

PATIENT
  Sex: Male
  Weight: 95.254 kg

DRUGS (3)
  1. ATIVAN [Interacting]
  2. INVEGA [Suspect]
     Indication: MANIA
     Dosage: 6.0 MG
     Route: 048
     Dates: start: 20120221, end: 20120227
  3. HALDOL [Concomitant]
     Indication: ANXIETY

REACTIONS (3)
  - VISION BLURRED [None]
  - COORDINATION ABNORMAL [None]
  - SLUGGISHNESS [None]
